FAERS Safety Report 8044453-9 (Version None)
Quarter: 2011Q4

REPORT INFORMATION
  Report Type: 
  Country: None (occurrence: None)
  Receive Date: 20111202
  Receipt Date: 20110111
  Transmission Date: 20120403
  Serious: Yes (Other)
  Sender: FDA-Public Use
  Company Number: 2011SP001283

PATIENT
  Age: 23 Year
  Sex: Female
  Weight: 100.6985 kg

DRUGS (1)
  1. NUVARING [Suspect]
     Indication: CONTRACEPTION
     Dates: start: 20081209, end: 20090224

REACTIONS (3)
  - PAPILLOMA VIRAL INFECTION [None]
  - DEEP VEIN THROMBOSIS [None]
  - VAGINAL DISCHARGE [None]
